FAERS Safety Report 5489513-1 (Version None)
Quarter: 2007Q4

REPORT INFORMATION
  Report Type: 
  Country: None (occurrence: None)
  Receive Date: 20071016
  Receipt Date: 20071016
  Transmission Date: 20080405
  Serious: Yes (Hospitalization)
  Sender: FDA-Public Use
  Company Number: None

PATIENT
  Sex: Female
  Weight: 56.1 kg

DRUGS (1)
  1. TEMOZOLOMIDE [Suspect]
     Dosage: 375 MG
     Dates: end: 20070220

REACTIONS (3)
  - BONE PAIN [None]
  - DISSEMINATED INTRAVASCULAR COAGULATION [None]
  - SPINAL CORD COMPRESSION [None]
